FAERS Safety Report 21598752 (Version 1)
Quarter: 2022Q4

REPORT INFORMATION
  Report Type: Spontaneous
  Country: US (occurrence: US)
  Receive Date: 20221115
  Receipt Date: 20221115
  Transmission Date: 20230112
  Serious: Yes (Other)
  Sender: FDA-Public Use
  Company Number: US-SA-SAC20221102000914

PATIENT
  Sex: Male

DRUGS (1)
  1. AVAPRO [Suspect]
     Active Substance: IRBESARTAN
     Dosage: UNK
     Dates: start: 2012

REACTIONS (1)
  - Hepatic cancer stage IV [Unknown]

NARRATIVE: CASE EVENT DATE: 20221001
